FAERS Safety Report 8371038-7 (Version None)
Quarter: 2012Q2

REPORT INFORMATION
  Report Type: 
  Country: None (occurrence: None)
  Receive Date: 20120518
  Receipt Date: 20120508
  Transmission Date: 20120825
  Serious: Yes (Other)
  Sender: FDA-Public Use
  Company Number: US-BRISTOL-MYERS SQUIBB COMPANY-16601726

PATIENT
  Age: 65 Year
  Sex: Male

DRUGS (5)
  1. BUPIVACAINE HCL [Suspect]
     Dosage: 0.08 %
  2. FENTANYL-100 [Suspect]
  3. LIDOCAINE [Suspect]
     Dosage: 1 % LIDOCAINE
  4. TRIAMCINOLONE ACETONIDE [Suspect]
     Dosage: 1 DF = 80 MG ITH BUPIVOCAINE 0.08 %, 11 ML WITH NORMAL SALINE, 10ML
  5. EPINEPHRINE [Suspect]

REACTIONS (1)
  - HICCUPS [None]
